FAERS Safety Report 14335586 (Version 1)
Quarter: 2017Q4

REPORT INFORMATION
  Report Type: Spontaneous
  Country: US (occurrence: US)
  Receive Date: 20171229
  Receipt Date: 20171229
  Transmission Date: 20180321
  Serious: No
  Sender: FDA-Public Use
  Company Number: US-TEVA-2017-US-827176

PATIENT
  Age: 55 Year
  Sex: Female
  Weight: 88.08 kg

DRUGS (23)
  1. BUPROPRION-SR [Concomitant]
     Indication: DEPRESSION
     Route: 065
  2. METFORMIN [Concomitant]
     Active Substance: METFORMIN HYDROCHLORIDE
     Indication: DIABETES MELLITUS
     Dosage: TAKING FOR 10YEARS TO 15YEARS AGO
  3. MAGNESIUM [Concomitant]
     Active Substance: MAGNESIUM
     Indication: SUPPLEMENTATION THERAPY
     Dosage: STARTED TAKING LAST YEARS.
  4. LANSOPRAZOLE. [Concomitant]
     Active Substance: LANSOPRAZOLE
     Indication: PROPHYLAXIS AGAINST GASTROINTESTINAL ULCER
  5. NABUMETONE. [Concomitant]
     Active Substance: NABUMETONE
     Indication: PAIN
  6. ALPROZOLAM [Concomitant]
     Active Substance: ALPRAZOLAM
     Indication: ANXIETY
     Dosage: ONE TABLET EVENING
  7. PROGESTERONE. [Concomitant]
     Active Substance: PROGESTERONE
     Indication: MENOPAUSE
     Dosage: AT NIGHT. ACTUAL HORMONE, SHE WAS ALLERGIC TO ARTIFICIAL.STARTED TAKING APPROXIMATELY 10YR.
  8. GLIMERPRIDE [Concomitant]
     Indication: DIABETES MELLITUS
     Dosage: TAKING APPROXIMATELY 10YRS AGO
  9. FLAXSEED [Concomitant]
     Active Substance: FLAX SEED
     Indication: DIABETES MELLITUS
     Dosage: HAS 540MG OF OMEGA 3. SHE STARTED TAKING ABOUT A YEAR AGO
  10. CALCIUM WITH VITAMIN D3 [Concomitant]
     Active Substance: CALCIUM CARBONATE\CHOLECALCIFEROL
     Indication: OSTEOPENIA
     Dosage: 1200MG CALCIUM, 25MG VITAMIN D3. TAKES FOR 10 YRS.
  11. NICOTINE ANTI-SMOKING FLAVOR [Suspect]
     Active Substance: NICOTINE
     Indication: SMOKING CESSATION THERAPY
  12. HYDROCODONE BITARTRATE AND ACETAMINOPHEN [Concomitant]
     Active Substance: ACETAMINOPHEN\HYDROCODONE BITARTRATE
     Indication: PAIN
     Dosage: 5M/325MG. 25YEARS OFF AND ON FOR SPINAL PROBLEMS.
  13. DILTIAZEM. [Concomitant]
     Active Substance: DILTIAZEM
     Dosage: TAKING FOR 15-20YRS
  14. FISH OIL [Concomitant]
     Active Substance: FISH OIL
     Indication: INFLAMMATION
  15. BUPROPRION-SR [Concomitant]
  16. BABY ASPIRIN [Concomitant]
     Active Substance: ASPIRIN
     Indication: ANTICOAGULANT THERAPY
     Dosage: TAKING FOR 20-25YRS
  17. LANSOPRAZOLE. [Concomitant]
     Active Substance: LANSOPRAZOLE
     Indication: PROPHYLAXIS
  18. CLARITIN [Concomitant]
     Active Substance: LORATADINE
     Indication: HYPERSENSITIVITY
     Dosage: TAKING FOR 15YRS.
  19. SUDAFED [Concomitant]
     Active Substance: PSEUDOEPHEDRINE HYDROCHLORIDE
     Indication: HYPERSENSITIVITY
  20. BABY ASPIRIN [Concomitant]
     Active Substance: ASPIRIN
     Indication: PROPHYLAXIS
  21. NABUMETONE. [Concomitant]
     Active Substance: NABUMETONE
     Indication: OSTEOARTHRITIS
     Dosage: TAKING APPROXIMATELY 30YRS.
  22. ENALAPRIL [Concomitant]
     Active Substance: ENALAPRIL
     Indication: BLOOD PRESSURE MEASUREMENT
     Dosage: STARTED TAKING 30YRS. SHE HAD TO STOP TAKING WHEN SHE HAD A STENT PUT IN HER AORTA.
  23. FISH OIL [Concomitant]
     Active Substance: FISH OIL
     Indication: SUPPLEMENTATION THERAPY
     Dosage: HAS 360MG OF OMEGA3. TAKING FOR 10YRS.

REACTIONS (2)
  - Drug ineffective [Unknown]
  - Product use issue [Unknown]
